FAERS Safety Report 8431223-2 (Version None)
Quarter: 2012Q2

REPORT INFORMATION
  Report Type: 
  Country: None (occurrence: None)
  Receive Date: 20120613
  Receipt Date: 20120531
  Transmission Date: 20120825
  Serious: Yes (Other)
  Sender: FDA-Public Use
  Company Number: JP-AMGEN-JPNSP2012015752

PATIENT
  Age: 35 Year
  Sex: Female

DRUGS (6)
  1. ENBREL [Suspect]
     Indication: PRODUCT USED FOR UNKNOWN INDICATION
     Dosage: 25 MG, 2X/WEEK
  2. LOXONIN [Concomitant]
     Indication: ANALGESIC THERAPY
     Dosage: 60 MG, 2X/DAY
     Route: 048
  3. MAG-LAX [Concomitant]
     Dosage: UNK
     Dates: end: 20120423
  4. RHEUMATREX [Concomitant]
     Dosage: 2 MG, WEEKLY
  5. LANSOPRAZOLE [Concomitant]
     Dosage: UNK
     Dates: end: 20120423
  6. ALENDRONATE SODIUM [Concomitant]
     Dosage: UNK
     Route: 048
     Dates: end: 20120423

REACTIONS (1)
  - DEAFNESS [None]
